FAERS Safety Report 4641226-1 (Version None)
Quarter: 2005Q2

REPORT INFORMATION
  Report Type: 
  Country: None (occurrence: None)
  Receive Date: 20050419
  Receipt Date: 20050419
  Transmission Date: 20051028
  Serious: Yes (Life-Threatening, Hospitalization)
  Sender: FDA-Public Use
  Company Number: None

PATIENT
  Age: 61 Year
  Sex: Male
  Weight: 128 kg

DRUGS (8)
  1. ZOCOR [Suspect]
     Indication: MIXED HYPERLIPIDAEMIA
     Dosage: 20 MG 1 TAB EVERY DAY
     Dates: start: 20050209, end: 20050221
  2. CORTISONE [Concomitant]
  3. ENOXAPARIN SODIUM [Concomitant]
  4. FELODIPINE [Concomitant]
  5. LEVOTHYROXINE SODIUM [Concomitant]
  6. METHROPROLOL [Concomitant]
  7. SENNA [Concomitant]
  8. WARFARIN SODIUM [Concomitant]

REACTIONS (8)
  - ATRIAL FIBRILLATION [None]
  - HAEMODYNAMIC INSTABILITY [None]
  - HYPOTENSION [None]
  - LOW DENSITY LIPOPROTEIN INCREASED [None]
  - PYREXIA [None]
  - RENAL FAILURE ACUTE [None]
  - RHABDOMYOLYSIS [None]
  - TACHYCARDIA [None]
